FAERS Safety Report 23285909 (Version 2)
Quarter: 2023Q4

REPORT INFORMATION
  Report Type: Report from Study
  Country: US (occurrence: US)
  Receive Date: 20231212
  Receipt Date: 20231221
  Transmission Date: 20240110
  Serious: Yes (Death, Other)
  Sender: FDA-Public Use
  Company Number: US-TAKEDA-2023TUS084338

PATIENT
  Age: 73 Year
  Sex: Male

DRUGS (6)
  1. MOBOCERTINIB [Suspect]
     Active Substance: MOBOCERTINIB
     Indication: Lung neoplasm malignant
     Dosage: 160 MILLIGRAM, QD
     Route: 048
     Dates: start: 20230828
  2. MOBOCERTINIB [Suspect]
     Active Substance: MOBOCERTINIB
     Dosage: 120 MILLIGRAM, QD
     Route: 048
  3. LOPERAMIDE [Concomitant]
     Active Substance: LOPERAMIDE
     Dosage: UNK
     Route: 065
  4. METOPROLOL [Concomitant]
     Active Substance: METOPROLOL
     Dosage: UNK
     Route: 065
  5. COREG [Concomitant]
     Active Substance: CARVEDILOL
     Dosage: 25 MILLIGRAM
     Route: 065
  6. COREG [Concomitant]
     Active Substance: CARVEDILOL
     Dosage: 12.5 MILLIGRAM
     Route: 065

REACTIONS (29)
  - Death [Fatal]
  - Transient ischaemic attack [Unknown]
  - Seizure [Unknown]
  - Blood potassium decreased [Unknown]
  - Rhinorrhoea [Unknown]
  - Retching [Unknown]
  - Dehydration [Unknown]
  - Skin fissures [Unknown]
  - Haematocrit decreased [Unknown]
  - Heart rate increased [Unknown]
  - Skin abrasion [Unknown]
  - Sneezing [Unknown]
  - Skin lesion [Unknown]
  - Skin haemorrhage [Unknown]
  - Fungal infection [Unknown]
  - Localised infection [Unknown]
  - Blood pressure increased [Unknown]
  - Cough [Unknown]
  - Blood urea increased [Unknown]
  - Haemoglobin decreased [Unknown]
  - Red blood cell count decreased [Unknown]
  - Dry skin [Unknown]
  - Alopecia [Unknown]
  - Rash [Unknown]
  - Nausea [Unknown]
  - Vomiting [Recovering/Resolving]
  - Decreased appetite [Unknown]
  - Diarrhoea [Unknown]
  - Blood creatinine increased [Unknown]

NARRATIVE: CASE EVENT DATE: 20230829
